FAERS Safety Report 8505543-7 (Version None)
Quarter: 2012Q3

REPORT INFORMATION
  Report Type: 
  Country: None (occurrence: None)
  Receive Date: 20120712
  Receipt Date: 20120702
  Transmission Date: 20120928
  Serious: Yes (Hospitalization, Other)
  Sender: FDA-Public Use
  Company Number: US-ELI_LILLY_AND_COMPANY-US201204007213

PATIENT
  Sex: Female
  Weight: 65.76 kg

DRUGS (21)
  1. VENTOLIN                                /SCH/ [Concomitant]
     Dosage: UNK
  2. MIRALAX [Concomitant]
     Dosage: UNK
  3. SINEMET [Concomitant]
     Dosage: UNK, TID
  4. NAMENDA [Concomitant]
     Dosage: UNK, BID
  5. LISINOPRIL [Concomitant]
     Dosage: UNK
  6. VERAPAMIL [Concomitant]
     Dosage: UNK
  7. LANTUS [Concomitant]
     Dosage: UNK
  8. CLONIDINE [Concomitant]
     Dosage: UNK
  9. MICARDIS [Concomitant]
     Dosage: UNK
  10. OMEPRAZOLE [Concomitant]
     Dosage: UNK
  11. MONOPRIL [Concomitant]
     Dosage: UNK
  12. EXELON [Concomitant]
     Dosage: UNK, QD
  13. NORVASC [Concomitant]
     Dosage: UNK
  14. CALCIUM CARBONATE [Concomitant]
     Dosage: UNK, QD
  15. SUCRALFATE [Concomitant]
     Dosage: UNK
  16. COUMADIN [Concomitant]
     Dosage: UNK
  17. HYDROCODONE BITARTRATE [Concomitant]
     Dosage: UNK
  18. FORTEO [Suspect]
     Indication: OSTEOPOROSIS
     Dosage: 20 UG, QD
     Route: 065
     Dates: start: 20110701
  19. REQUIP [Concomitant]
     Dosage: UNK
  20. ZOCOR [Concomitant]
     Dosage: UNK, QD
  21. FENTANYL [Concomitant]
     Dosage: UNK

REACTIONS (5)
  - DYSPHAGIA [None]
  - ASTHENIA [None]
  - OESOPHAGEAL STENOSIS [None]
  - HYPOTENSION [None]
  - PNEUMONIA ASPIRATION [None]
